FAERS Safety Report 5400544-X (Version None)
Quarter: 2007Q3

REPORT INFORMATION
  Report Type: 
  Country: None (occurrence: None)
  Receive Date: 20070725
  Receipt Date: 20070720
  Transmission Date: 20080115
  Serious: Yes (Life-Threatening)
  Sender: FDA-Public Use
  Company Number: 2007S1000145

PATIENT
  Age: 2 Day
  Sex: Female
  Weight: 0.84 kg

DRUGS (15)
  1. NITRIC OXIDE [Suspect]
     Indication: LUNG DISORDER
     Dosage: 5 PPM;CONT; INH
     Route: 055
     Dates: start: 20070520, end: 20070610
  2. AMPICILLIN [Concomitant]
  3. CEFOTAXIME SODIUM [Concomitant]
  4. TOBRAMYCIN [Concomitant]
  5. NYSTATIN [Concomitant]
  6. PHENOBARBITAL TAB [Concomitant]
  7. DESMOPRESSIN [Concomitant]
  8. INDOMETHACIN [Concomitant]
  9. DIAZEPAM [Concomitant]
  10. CEFTAZIDIME [Concomitant]
  11. VANCOMYCIN [Concomitant]
  12. PROPOFOL [Concomitant]
  13. SALBUTAMOL [Concomitant]
  14. DOBUTAMINE HCL [Concomitant]
  15. FENTANYL [Concomitant]

REACTIONS (2)
  - DRUG INEFFECTIVE [None]
  - PATENT DUCTUS ARTERIOSUS [None]
